FAERS Safety Report 4285760-5 (Version None)
Quarter: 2004Q1

REPORT INFORMATION
  Report Type: 
  Country: None (occurrence: None)
  Receive Date: 20040203
  Receipt Date: 20040119
  Transmission Date: 20041129
  Serious: Yes (Hospitalization, Other)
  Sender: FDA-Public Use
  Company Number: 189083

PATIENT
  Sex: Female

DRUGS (9)
  1. AVONEX [Suspect]
     Indication: MULTIPLE SCLEROSIS
     Dates: start: 20000901, end: 20011101
  2. NORVASC [Concomitant]
  3. DONNATAL [Concomitant]
  4. NEURONTIN [Concomitant]
  5. NASONEX [Concomitant]
  6. PROVIGIL [Concomitant]
  7. CELEXA [Concomitant]
  8. KLONOPIN [Concomitant]
  9. METHYLPREDNISONLONE POWDER [Concomitant]

REACTIONS (3)
  - BREAST CANCER [None]
  - MASTECTOMY [None]
  - SINUS OPERATION [None]
